FAERS Safety Report 6913429-4 (Version None)
Quarter: 2010Q3

REPORT INFORMATION
  Report Type: 
  Country: None (occurrence: None)
  Receive Date: 20100804
  Receipt Date: 20100804
  Transmission Date: 20110219
  Serious: Yes (Death)
  Sender: FDA-Public Use
  Company Number: None

PATIENT
  Sex: Female
  Weight: 83 kg

DRUGS (2)
  1. ADSOL RED CELL PRESERVATION SOLUTION (PL 2209) CPD AND ADSOL AND/OR SE [Suspect]
     Indication: ANAEMIA
     Dosage: 1 UNIT ONE TIME IV
     Route: 042
     Dates: start: 20100408, end: 20100408
  2. ADSOL RED CELL PRESERVATION SOLUTION (PL 2209) CPD AND ADSOL AND/OR SE [Suspect]
     Indication: ANAEMIA
     Dosage: 1 UNIT ONE TIME IV
     Route: 042
     Dates: start: 20100408, end: 20100408

REACTIONS (1)
  - TRANSFUSION-RELATED ACUTE LUNG INJURY [None]
